FAERS Safety Report 9174313 (Version 7)
Quarter: 2015Q1

REPORT INFORMATION
  Report Type: Spontaneous
  Country: US (occurrence: US)
  Receive Date: 20130320
  Receipt Date: 20150318
  Transmission Date: 20150721
  Serious: Yes (Hospitalization, Other)
  Sender: FDA-Public Use
  Company Number: US-ELI_LILLY_AND_COMPANY-US201303003346

PATIENT
  Age: 14 Year

DRUGS (1)
  1. PROZAC [Suspect]
     Active Substance: FLUOXETINE HYDROCHLORIDE
     Indication: DEPRESSION
     Dosage: UNK, UNKNOWN
     Route: 064

REACTIONS (18)
  - Appendicitis [Unknown]
  - Foetal exposure during pregnancy [Recovered/Resolved]
  - Ventricular extrasystoles [Unknown]
  - Dyspnoea [Unknown]
  - Depression [Unknown]
  - Staphylococcal infection [Unknown]
  - Encephalopathy [Unknown]
  - Attention deficit/hyperactivity disorder [Unknown]
  - Bipolar disorder [Unknown]
  - Panic disorder [Unknown]
  - Eye pain [Unknown]
  - Scoliosis [Unknown]
  - Abdominal lymphadenopathy [Recovered/Resolved]
  - Cardiac murmur [Recovered/Resolved]
  - Generalised anxiety disorder [Unknown]
  - Pleural effusion [Recovered/Resolved]
  - Social phobia [Unknown]
  - Costochondritis [Unknown]

NARRATIVE: CASE EVENT DATE: 2000
